FAERS Safety Report 6878638-1 (Version None)
Quarter: 2010Q3

REPORT INFORMATION
  Report Type: 
  Country: None (occurrence: None)
  Receive Date: 20100728
  Receipt Date: 20100719
  Transmission Date: 20110219
  Serious: Yes (Hospitalization)
  Sender: FDA-Public Use
  Company Number: A0871150A

PATIENT
  Age: 64 Year
  Sex: Male

DRUGS (20)
  1. COREG [Suspect]
     Indication: CARDIAC FAILURE CONGESTIVE
     Dosage: 1TAB TWICE PER DAY
     Route: 048
     Dates: start: 20090101
  2. UNKNOWN [Suspect]
     Indication: ILL-DEFINED DISORDER
  3. PLAVIX [Concomitant]
  4. IMDUR [Concomitant]
  5. PROTONIX [Concomitant]
  6. DEMADEX [Concomitant]
  7. ASPIRIN [Concomitant]
  8. RANEXA [Concomitant]
  9. SIMVASTATIN [Concomitant]
  10. FENOFIBRATE [Concomitant]
  11. POTASSIUM [Concomitant]
  12. FLOMAX [Concomitant]
  13. TIMOPTIC [Concomitant]
  14. LANTUS [Concomitant]
  15. HUMALOG [Concomitant]
  16. PERFOROMIST [Concomitant]
  17. PERCOCET [Concomitant]
  18. XANAX [Concomitant]
  19. FENTANYL-75 [Concomitant]
  20. NITROGLYCERIN [Concomitant]

REACTIONS (7)
  - BLOOD POTASSIUM DECREASED [None]
  - CARBON DIOXIDE INCREASED [None]
  - DEHYDRATION [None]
  - DYSPNOEA [None]
  - FLUID RETENTION [None]
  - HAEMORRHAGE [None]
  - OEDEMA PERIPHERAL [None]
